FAERS Safety Report 9474604 (Version 2)
Quarter: 2013Q3

REPORT INFORMATION
  Report Type: Spontaneous
  Country: CN (occurrence: CN)
  Receive Date: 20130823
  Receipt Date: 20130906
  Transmission Date: 20140515
  Serious: Yes (Hospitalization)
  Sender: FDA-Public Use
  Company Number: CN-GLAXOSMITHKLINE-B0917137A

PATIENT
  Age: 18 Year
  Sex: Male

DRUGS (2)
  1. LAMIVUDINE-HBV [Suspect]
     Indication: HEPATITIS B
     Route: 048
     Dates: start: 20110901
  2. ADEFOVIR DIPIVOXIL [Suspect]
     Indication: HEPATITIS B
     Route: 048
     Dates: start: 20110901

REACTIONS (14)
  - Epidermolysis [Recovered/Resolved]
  - Dermatitis bullous [Unknown]
  - Rash [Unknown]
  - Pain [Unknown]
  - Malaise [Unknown]
  - Rash pustular [Unknown]
  - Blister [Unknown]
  - Purulent discharge [Unknown]
  - Ulcer [Unknown]
  - Conjunctival hyperaemia [Unknown]
  - Dyskinesia [Unknown]
  - Skin ulcer [Unknown]
  - Lung infection [Unknown]
  - Hepatitis B [Unknown]
